FAERS Safety Report 17975474 (Version 1)
Quarter: 2020Q3

REPORT INFORMATION
  Report Type: Spontaneous
  Country: CA (occurrence: CA)
  Receive Date: 20200702
  Receipt Date: 20200702
  Transmission Date: 20201103
  Serious: Yes (Death)
  Sender: FDA-Public Use
  Company Number: CA-FRESENIUS KABI-FK202006672

PATIENT
  Age: 49 Year
  Sex: Male
  Weight: 104.42 kg

DRUGS (2)
  1. MIDAZOLAM 5 MG / 5 ML [Suspect]
     Active Substance: MIDAZOLAM HYDROCHLORIDE
     Indication: PRODUCT USED FOR UNKNOWN INDICATION
     Dosage: 2 VIALS
     Route: 065
  2. PROPOFOL LCT/MCT 10 MG/ML FRESENIUS [Suspect]
     Active Substance: PROPOFOL
     Indication: PRODUCT USED FOR UNKNOWN INDICATION
     Dosage: 3 VIALS
     Route: 042

REACTIONS (1)
  - Death [Fatal]
